FAERS Safety Report 22634446 (Version 1)
Quarter: 2023Q2

REPORT INFORMATION
  Report Type: Spontaneous
  Country: US (occurrence: None)
  Receive Date: 20230622
  Receipt Date: 20230622
  Transmission Date: 20230721
  Serious: Yes (Other)
  Sender: FDA-Public Use
  Company Number: None

PATIENT
  Age: 26 Year
  Sex: Female
  Weight: 67.95 kg

DRUGS (4)
  1. AIMOVIG [Suspect]
     Active Substance: ERENUMAB-AOOE
     Indication: Migraine
     Dosage: OTHER FREQUENCY : EVERY 28 DAYS;?
     Route: 058
     Dates: start: 20230203
  2. Rizatriptan ODT 10 mg Tablet [Concomitant]
     Dates: start: 20221019
  3. Hydroxyzine 25 mg tablet [Concomitant]
     Dates: start: 20230222
  4. Escitalopram 20 mg tablet [Concomitant]
     Dates: start: 20230222

REACTIONS (1)
  - Alopecia [None]

NARRATIVE: CASE EVENT DATE: 20230622
